FAERS Safety Report 4599114-5 (Version None)
Quarter: 2005Q1

REPORT INFORMATION
  Report Type: 
  Country: None (occurrence: None)
  Receive Date: 20050302
  Receipt Date: 20050222
  Transmission Date: 20050727
  Serious: Yes (Death, Hospitalization)
  Sender: FDA-Public Use
  Company Number: 2005UW03057

PATIENT
  Age: 75 Year
  Sex: Female

DRUGS (4)
  1. TAXOTERE [Suspect]
     Indication: NON-SMALL CELL LUNG CANCER
     Dosage: 75 MG/M2 Q3WK IV
     Route: 042
     Dates: start: 20050211
  2. DIDROCAL [Concomitant]
  3. HYDROMORPHONE [Concomitant]
  4. CRESTOR [Concomitant]

REACTIONS (15)
  - BLOOD CHLORIDE DECREASED [None]
  - BLOOD POTASSIUM DECREASED [None]
  - BLOOD SODIUM DECREASED [None]
  - BLOOD UREA INCREASED [None]
  - BONE NEOPLASM [None]
  - DRUG INEFFECTIVE [None]
  - FEBRILE NEUTROPENIA [None]
  - HAEMOGLOBIN INCREASED [None]
  - HYPOTENSION [None]
  - LYMPHADENOPATHY [None]
  - NEUTROPENIC SEPSIS [None]
  - PLATELET COUNT DECREASED [None]
  - PNEUMONIA [None]
  - PULMONARY BULLA [None]
  - WHEEZING [None]
